FAERS Safety Report 9611564 (Version 2)
Quarter: 2013Q4

REPORT INFORMATION
  Report Type: Report from Study
  Country: NL (occurrence: NL)
  Receive Date: 20131010
  Receipt Date: 20131010
  Transmission Date: 20140711
  Serious: Yes (Other)
  Sender: FDA-Public Use
  Company Number: PHHY2013NL073269

PATIENT
  Sex: Female

DRUGS (5)
  1. ZOMETA [Suspect]
     Indication: BREAST CANCER METASTATIC
     Dosage: 4MG/100ML, ONCE PER 12 WEEKS
     Route: 042
  2. ZOMETA [Suspect]
     Dosage: 4MG/100ML, ONCE PER 12 WEEKS
     Route: 042
     Dates: start: 20120423
  3. ZOMETA [Suspect]
     Dosage: 4MG/100ML, ONCE PER 12 WEEKS
     Route: 042
     Dates: start: 20130315
  4. ZOMETA [Suspect]
     Dosage: 4MG/100ML, ONCE PER 12 WEEKS
     Route: 041
     Dates: start: 20130411
  5. ZOMETA [Suspect]
     Dosage: 4MG/100ML, ONCE PER 12 WEEKS
     Route: 041
     Dates: start: 20130816

REACTIONS (1)
  - Osteonecrosis of jaw [Unknown]
